FAERS Safety Report 23192483 (Version 1)
Quarter: 2023Q4

REPORT INFORMATION
  Report Type: Spontaneous
  Country: CA (occurrence: None)
  Receive Date: 20231116
  Receipt Date: 20231116
  Transmission Date: 20240110
  Serious: Yes (Hospitalization)
  Sender: FDA-Public Use
  Company Number: CA-ROCHE-3452860

PATIENT
  Age: 65 Year
  Sex: Female

DRUGS (17)
  1. ACTEMRA [Suspect]
     Active Substance: TOCILIZUMAB
     Indication: Rheumatoid arthritis
     Route: 042
  2. ACTEMRA [Suspect]
     Active Substance: TOCILIZUMAB
     Route: 042
  3. ACTEMRA [Suspect]
     Active Substance: TOCILIZUMAB
     Indication: Rheumatoid arthritis
     Route: 065
  4. ASPIRIN [Concomitant]
     Active Substance: ASPIRIN
  5. CALCIUM [Concomitant]
     Active Substance: CALCIUM
  6. CYANOCOBALAMIN [Concomitant]
     Active Substance: CYANOCOBALAMIN
  7. FOLIC ACID [Concomitant]
     Active Substance: FOLIC ACID
  8. FOSAMAX [Concomitant]
     Active Substance: ALENDRONATE SODIUM
  9. LASIX [Concomitant]
     Active Substance: FUROSEMIDE
  10. METOPROLOL [Concomitant]
     Active Substance: METOPROLOL
  11. PANTOPRAZOLE [Concomitant]
     Active Substance: PANTOPRAZOLE
  12. PANTOPRAZOLE SODIUM [Concomitant]
     Active Substance: PANTOPRAZOLE SODIUM
  13. PREDNISONE [Concomitant]
     Active Substance: PREDNISONE
  14. SIMVASTATIN [Concomitant]
     Active Substance: SIMVASTATIN
  15. TYLENOL [Concomitant]
     Active Substance: ACETAMINOPHEN
  16. VITAMIN A [Concomitant]
     Active Substance: VITAMIN A
  17. WARFARIN [Concomitant]
     Active Substance: WARFARIN

REACTIONS (35)
  - Abdominal discomfort [Unknown]
  - Arthralgia [Unknown]
  - Blood pressure decreased [Unknown]
  - Blood pressure increased [Unknown]
  - Contusion [Unknown]
  - Cystitis [Unknown]
  - Diarrhoea [Unknown]
  - Drug ineffective [Unknown]
  - Drug interaction [Unknown]
  - Dysphonia [Unknown]
  - Fungal infection [Unknown]
  - Haemoglobin decreased [Unknown]
  - Heart rate decreased [Unknown]
  - Heart rate increased [Unknown]
  - Heart rate irregular [Unknown]
  - Hiatus hernia [Unknown]
  - Hiatus hernia strangulated [Unknown]
  - Influenza [Unknown]
  - International normalised ratio decreased [Unknown]
  - International normalised ratio increased [Unknown]
  - Lung disorder [Unknown]
  - Mass [Unknown]
  - Muscle rupture [Unknown]
  - Myalgia [Unknown]
  - Nasopharyngitis [Unknown]
  - Oropharyngeal pain [Unknown]
  - Otitis media acute [Unknown]
  - Palpitations [Unknown]
  - Peripheral swelling [Unknown]
  - Rheumatoid arthritis [Unknown]
  - Rhinitis [Unknown]
  - Tooth abscess [Unknown]
  - Tooth disorder [Unknown]
  - Tympanic membrane perforation [Unknown]
  - Weight decreased [Unknown]
